FAERS Safety Report 19508441 (Version 5)
Quarter: 2022Q2

REPORT INFORMATION
  Report Type: Report from Study
  Country: US (occurrence: US)
  Receive Date: 20210708
  Receipt Date: 20220421
  Transmission Date: 20220720
  Serious: No
  Sender: FDA-Public Use
  Company Number: NVSC2021US145109

PATIENT
  Age: 50 Year
  Sex: Female

DRUGS (3)
  1. COSENTYX [Suspect]
     Active Substance: SECUKINUMAB
     Indication: Psoriatic arthropathy
     Dosage: 150 MG, QW
     Route: 058
     Dates: start: 20210615
  2. COSENTYX [Suspect]
     Active Substance: SECUKINUMAB
     Dosage: 300 MG, QMO
     Route: 058
  3. METHOTREXATE [Concomitant]
     Active Substance: METHOTREXATE
     Indication: Product used for unknown indication
     Dosage: UNK
     Route: 065

REACTIONS (6)
  - Swelling [Not Recovered/Not Resolved]
  - Headache [Unknown]
  - Pain [Not Recovered/Not Resolved]
  - Diarrhoea [Unknown]
  - Injection site haemorrhage [Recovering/Resolving]
  - Drug ineffective [Unknown]

NARRATIVE: CASE EVENT DATE: 20210615
